FAERS Safety Report 9453826 (Version 1)
Quarter: 2013Q1

REPORT INFORMATION
  Report Type: Not Available
  Country: US (occurrence: US)
  Receive Date: 20120321
  Receipt Date: 20120321
  Transmission Date: 20140127
  Serious: Yes (Hospitalization)
  Sender: FDA-Public Use
  Company Number: US-LUNDBECK-DKLU1076738

PATIENT
  Age: 45 None
  Sex: Female

DRUGS (6)
  1. SABRIL     (TABLET) [Suspect]
     Route: 048
     Dates: start: 20111013
  2. SABRIL     (TABLET) [Suspect]
     Route: 048
     Dates: start: 20111013
  3. TRILEPTAL [Concomitant]
     Indication: CONVULSION
     Route: 048
  4. KEPPRA [Concomitant]
     Route: 048
  5. KEPPRA [Concomitant]
  6. TOPAMAX [Concomitant]
     Indication: CONVULSION
     Route: 048

REACTIONS (7)
  - Dizziness [Recovered/Resolved]
  - Vomiting [Recovered/Resolved]
  - Photophobia [Not Recovered/Not Resolved]
  - Personality change [Unknown]
  - Belligerence [Unknown]
  - Confabulation [Unknown]
  - Irritability [Unknown]
